FAERS Safety Report 24372021 (Version 1)
Quarter: 2024Q3

REPORT INFORMATION
  Report Type: Spontaneous
  Country: FR (occurrence: FR)
  Receive Date: 20240927
  Receipt Date: 20240927
  Transmission Date: 20241017
  Serious: Yes (Hospitalization, Other)
  Sender: Unknown Manufacturer
  Company Number: FR-AFSSAPS-BX202111523

PATIENT

DRUGS (9)
  1. GAVRETO [Suspect]
     Active Substance: PRALSETINIB
     Indication: Lung cancer metastatic
     Dosage: 400 MILLIGRAM, QD
     Route: 065
     Dates: start: 20210115
  2. GAVRETO [Suspect]
     Active Substance: PRALSETINIB
     Dosage: 400 MILLIGRAM, QD
     Route: 065
     Dates: start: 20210203
  3. GAVRETO [Suspect]
     Active Substance: PRALSETINIB
     Dosage: 300 MILLIGRAM, QD
     Route: 065
     Dates: start: 20211018
  4. GAVRETO [Suspect]
     Active Substance: PRALSETINIB
     Dosage: 400 MILLIGRAM, QD
     Route: 065
     Dates: start: 20210203
  5. PEMETREXED [Suspect]
     Active Substance: PEMETREXED
     Indication: Non-small cell lung cancer
     Dosage: UNK UNK, CYCLICAL, 4 CYCLE
     Route: 065
     Dates: start: 20190315, end: 20190522
  6. PEMETREXED [Suspect]
     Active Substance: PEMETREXED
     Dosage: UNK UNK, UNKNOWN
     Route: 065
     Dates: start: 20240430
  7. PEMETREXED [Suspect]
     Active Substance: PEMETREXED
     Dosage: UNK UNK, CYCLICAL 25 CYCLE
     Route: 065
     Dates: start: 20190612, end: 20201030
  8. SIMVASTATIN [Concomitant]
     Active Substance: SIMVASTATIN
     Indication: Product used for unknown indication
     Dosage: UNK
     Route: 065
  9. CARBOPLATIN [Concomitant]
     Active Substance: CARBOPLATIN
     Indication: Product used for unknown indication
     Dosage: UNK UNK, CYCLICAL, (PARTIAL RESPONSE FROM APRIL 2019)
     Route: 065
     Dates: start: 20190315, end: 20190522

REACTIONS (2)
  - Rhabdomyolysis [Unknown]
  - Malignant neoplasm progression [Unknown]

NARRATIVE: CASE EVENT DATE: 20201118
